FAERS Safety Report 7330115-X (Version None)
Quarter: 2011Q1

REPORT INFORMATION
  Report Type: 
  Country: None (occurrence: None)
  Receive Date: 20110303
  Receipt Date: 20110224
  Transmission Date: 20110831
  Serious: Yes (Hospitalization, Other)
  Sender: FDA-Public Use
  Company Number: US-BAYER-2011-018429

PATIENT
  Age: 19 Year
  Sex: Female

DRUGS (1)
  1. BEYAZ [Suspect]
     Indication: CONTRACEPTION
     Dosage: QD
     Route: 048

REACTIONS (3)
  - HYPERSENSITIVITY [None]
  - SWOLLEN TONGUE [None]
  - DYSPNOEA [None]
